FAERS Safety Report 19904177 (Version 1)
Quarter: 2021Q3

REPORT INFORMATION
  Report Type: Spontaneous
  Country: DE (occurrence: DE)
  Receive Date: 20210930
  Receipt Date: 20210930
  Transmission Date: 20211014
  Serious: Yes (Other)
  Sender: FDA-Public Use
  Company Number: DE-ALVOGEN-2021-ALVOGEN-117599

PATIENT
  Age: 89 Year
  Sex: Female

DRUGS (1)
  1. FENTANYL. [Suspect]
     Active Substance: FENTANYL
     Indication: PRODUCT USED FOR UNKNOWN INDICATION

REACTIONS (7)
  - Muscle rigidity [Recovering/Resolving]
  - Abnormal sleep-related event [Recovering/Resolving]
  - Wrong technique in device usage process [Recovering/Resolving]
  - Respiratory depression [Recovering/Resolving]
  - Altered state of consciousness [Recovering/Resolving]
  - Overdose [Recovering/Resolving]
  - Toxicity to various agents [Recovering/Resolving]
